FAERS Safety Report 11927802 (Version 2)
Quarter: 2016Q1

REPORT INFORMATION
  Report Type: Spontaneous
  Country: US (occurrence: US)
  Receive Date: 20160119
  Receipt Date: 20160129
  Transmission Date: 20160526
  Serious: No
  Sender: FDA-Public Use
  Company Number: US-PFIZER INC-2015463194

PATIENT
  Age: 37 Year
  Sex: Female

DRUGS (1)
  1. XELJANZ [Suspect]
     Active Substance: TOFACITINIB CITRATE
     Dosage: 5 MG, 1X/DAY
     Dates: start: 20151217, end: 20151221

REACTIONS (6)
  - Decreased appetite [Unknown]
  - Peripheral swelling [Unknown]
  - Chest pain [Recovered/Resolved]
  - Rash pruritic [Recovered/Resolved]
  - Nausea [Unknown]
  - Chest discomfort [Unknown]
